FAERS Safety Report 17705374 (Version 3)
Quarter: 2020Q2

REPORT INFORMATION
  Report Type: Spontaneous
  Country: DE (occurrence: DE)
  Receive Date: 20200424
  Receipt Date: 20200515
  Transmission Date: 20200714
  Serious: Yes (Death)
  Sender: FDA-Public Use
  Company Number: DE-ACTELION-A-CH2020-204370

PATIENT
  Age: 56 Year
  Sex: Male

DRUGS (2)
  1. VELETRI [Suspect]
     Active Substance: EPOPROSTENOL
     Indication: RESPIRATORY FAILURE
  2. VELETRI [Suspect]
     Active Substance: EPOPROSTENOL
     Indication: COVID-19
     Dosage: UNK
     Route: 042
     Dates: start: 20200410

REACTIONS (4)
  - Product use in unapproved indication [Unknown]
  - COVID-19 [Fatal]
  - Cardiac failure [Fatal]
  - Myocarditis [Fatal]
